FAERS Safety Report 4336445-8 (Version None)
Quarter: 2004Q2

REPORT INFORMATION
  Report Type: 
  Country: None (occurrence: None)
  Receive Date: 20040412
  Receipt Date: 20040406
  Transmission Date: 20050107
  Serious: Yes (Other)
  Sender: FDA-Public Use
  Company Number: 200410758DE

PATIENT
  Sex: 0

DRUGS (1)
  1. ARAVA [Suspect]

REACTIONS (1)
  - MOUTH HAEMORRHAGE [None]
